FAERS Safety Report 9326211 (Version 6)
Quarter: 2014Q3

REPORT INFORMATION
  Report Type: Report from Study
  Country: FR (occurrence: FR)
  Receive Date: 20130604
  Receipt Date: 20140702
  Transmission Date: 20150326
  Serious: Yes (Hospitalization)
  Sender: FDA-Public Use
  Company Number: FR-PFIZER INC-2013165751

PATIENT
  Age: 14 Year
  Sex: Female
  Weight: 56.2 kg

DRUGS (6)
  1. VINCRISTINE [Suspect]
     Active Substance: VINCRISTINE
     Indication: NEOPLASM MALIGNANT
     Dosage: 2 MG, 1 IN 1 DAY (DATE OF LAST DOSE PRIOR TO SAE 15/MAY/2013)
     Route: 042
     Dates: start: 20130508
  2. BACTRIM [Concomitant]
     Active Substance: SULFAMETHOXAZOLE\TRIMETHOPRIM
     Dosage: 340 MG, UNK
     Dates: start: 20130510
  3. ADRIBLASTINE [Suspect]
     Active Substance: DOXORUBICIN
     Indication: NEOPLASM MALIGNANT
     Dosage: 50 MG, 1X/DAY (DATE OF LAST DOSE PRIOR TO SAE: 31/MAY/2013)
     Route: 042
     Dates: start: 20130509
  4. ENANTONE LP [Concomitant]
     Active Substance: LEUPROLIDE ACETATE
     Dosage: 375 MG, UNK
     Dates: start: 20130510
  5. HOLOXAN [Suspect]
     Active Substance: IFOSFAMIDE
     Indication: NEOPLASM MALIGNANT
     Dosage: 5000 MG, 1X/DAY (LAST DOSE PRIOR TO SAE: 09/MAY/2013)
     Route: 042
     Dates: start: 20130508
  6. ACTINOMYCIN D [Suspect]
     Active Substance: DACTINOMYCIN
     Indication: NEOPLASM MALIGNANT
     Dosage: 2 MG, ONCE (LAST DOSE PRIOR TO SAE: 29/MAY/2013)
     Route: 042
     Dates: start: 20130508

REACTIONS (1)
  - Febrile bone marrow aplasia [Recovered/Resolved]

NARRATIVE: CASE EVENT DATE: 20130519
